FAERS Safety Report 6880885-X (Version None)
Quarter: 2010Q3

REPORT INFORMATION
  Report Type: 
  Country: None (occurrence: None)
  Receive Date: 20100728
  Receipt Date: 20100719
  Transmission Date: 20110219
  Serious: Yes (Hospitalization)
  Sender: FDA-Public Use
  Company Number: DE-ABBOTT-10P-062-0658583-00

PATIENT

DRUGS (12)
  1. HUMIRA [Suspect]
     Indication: RHEUMATOID ARTHRITIS
     Route: 058
     Dates: start: 20050401, end: 20090101
  2. DECORTIN [Concomitant]
     Indication: RHEUMATOID ARTHRITIS
     Route: 048
     Dates: end: 20100401
  3. DECORTIN [Concomitant]
     Route: 048
     Dates: start: 20100401
  4. MTX [Concomitant]
     Indication: RHEUMATOID ARTHRITIS
     Dosage: 15 MG WEEKLY
     Route: 048
     Dates: start: 20061201, end: 20090201
  5. MTX [Concomitant]
     Dosage: 15 MG WEEKLY
     Route: 048
     Dates: start: 20090701
  6. KARVEZIDE [Concomitant]
     Indication: HYPERTENSION
     Dosage: 150/1.5 DAILY
     Route: 048
     Dates: start: 20050301
  7. CLONIDINE [Concomitant]
     Indication: HYPERTENSION
     Dates: start: 20050701
  8. MOXONIDIN [Concomitant]
     Indication: HYPERTENSION
     Route: 048
     Dates: start: 20071101
  9. PANTOZOL [Concomitant]
     Indication: GASTRIC DISORDER
     Route: 048
     Dates: start: 20000101
  10. PANTOZOL [Concomitant]
     Indication: PROPHYLAXIS
  11. CALCIMAGON-D3 [Concomitant]
     Indication: OSTEOPOROSIS PROPHYLAXIS
     Route: 048
     Dates: start: 20050701
  12. VIANI [Concomitant]
     Indication: CHRONIC OBSTRUCTIVE PULMONARY DISEASE
     Route: 055
     Dates: start: 20090301

REACTIONS (4)
  - CHRONIC OBSTRUCTIVE PULMONARY DISEASE [None]
  - GASTRITIS [None]
  - RENAL FUNCTION TEST ABNORMAL [None]
  - TRANSAMINASES INCREASED [None]
